FAERS Safety Report 5196602-8 (Version None)
Quarter: 2007Q1

REPORT INFORMATION
  Report Type: 
  Country: None (occurrence: None)
  Receive Date: 20070103
  Receipt Date: 20061228
  Transmission Date: 20070707
  Serious: Yes (Hospitalization)
  Sender: FDA-Public Use
  Company Number: PHNU2006DE03600

PATIENT
  Age: 65 Year
  Sex: Male

DRUGS (16)
  1. UV-A LIGHT [Concomitant]
     Dosage: TWO APPLICATIONS
     Dates: start: 20061016, end: 20061017
  2. CARMEN [Concomitant]
  3. DIOVAN [Concomitant]
     Dosage: UNK, UNK
     Route: 048
     Dates: start: 20061004
  4. DIOVAN [Concomitant]
     Dosage: 0.25 TABLET IN THE MORNING
     Route: 048
     Dates: start: 20061001
  5. CO-DIOVAN FORTE [Suspect]
     Indication: HYPERTENSION
     Dosage: 1 DF, QD
     Route: 048
     Dates: start: 20051001, end: 20061003
  6. AMLODIPINE [Concomitant]
     Dosage: 1 DF, QD
     Dates: start: 20061004
  7. XUSAL [Concomitant]
     Dates: start: 20061001
  8. FENISTIL [Concomitant]
     Dates: start: 20061001
  9. ATARAX [Concomitant]
     Dates: start: 20061001
  10. DECORTIN-H [Concomitant]
     Dates: start: 20061001
  11. DERMOXIN [Concomitant]
     Dosage: UNK, UNK
     Route: 061
     Dates: start: 20061001
  12. ALFASON [Concomitant]
     Dosage: UNK, UNK
     Route: 061
     Dates: start: 20061001
  13. TRICLOSAN [Concomitant]
     Route: 061
     Dates: start: 20061001
  14. CEFUROXIME [Concomitant]
     Dosage: 250 MG, BID
     Dates: start: 20061001
  15. ECURAL [Concomitant]
     Dates: start: 20061001
  16. DERMATOP [Concomitant]
     Dates: start: 20061001

REACTIONS (4)
  - ECZEMA [None]
  - ERYTHEMA [None]
  - PHOTOSENSITIVITY REACTION [None]
  - STAPHYLOCOCCAL INFECTION [None]
